FAERS Safety Report 12924123 (Version 1)
Quarter: 2016Q4

REPORT INFORMATION
  Report Type: Spontaneous
  Country: US (occurrence: US)
  Receive Date: 20161109
  Receipt Date: 20161109
  Transmission Date: 20170207
  Serious: No
  Sender: FDA-Public Use
  Company Number: None

PATIENT
  Age: 68 Year
  Sex: Female
  Weight: 52.66 kg

DRUGS (1)
  1. VIEKIRA PAK [Suspect]
     Active Substance: DASABUVIR\OMBITASVIR\PARITAPREVIR\RITONAVIR
     Indication: HEPATITIS C
     Dosage: VIEKIRA PAK TAKE AS DIRECTED BY MOUTH
     Route: 048
     Dates: start: 20161017, end: 20161025

REACTIONS (4)
  - Constipation [None]
  - Drug interaction [None]
  - Dyspepsia [None]
  - Oral candidiasis [None]

NARRATIVE: CASE EVENT DATE: 20161024
